FAERS Safety Report 7541817-4 (Version None)
Quarter: 2011Q2

REPORT INFORMATION
  Report Type: 
  Country: None (occurrence: None)
  Receive Date: 20110606
  Receipt Date: 20110526
  Transmission Date: 20111010
  Serious: Yes (Hospitalization)
  Sender: FDA-Public Use
  Company Number: WAES 1104FRA00147

PATIENT
  Age: 68 Year
  Sex: Male

DRUGS (9)
  1. TAB RALTEGRAVIR POTASSIUM [Suspect]
     Indication: HIV INFECTION
     Dosage: 400 MG, BID, PO
     Route: 048
     Dates: start: 20110209
  2. ASPIRIN LYSINE [Concomitant]
  3. INJ MUPLESTIM [Suspect]
     Dosage: 0.54, 0.53  ML/DAILY, SC
     Route: 058
     Dates: start: 20110405, end: 20110405
  4. INJ MUPLESTIM [Suspect]
     Dosage: 0.54, 0.53  ML/DAILY, SC
     Route: 058
     Dates: start: 20110419, end: 20110419
  5. INJ MUPLESTIM [Suspect]
     Dosage: 0.54, 0.53  ML/DAILY, SC
     Route: 058
     Dates: start: 20110413, end: 20110413
  6. ABACAVIR SULFATE/LAMIVUDINE [Concomitant]
  7. RITONAVIR [Concomitant]
  8. MARAVIROC [Suspect]
     Indication: HIV INFECTION
     Dosage: 300 MG, DAILY, PO
     Route: 048
     Dates: start: 20110209
  9. DARUNAVIR ETHANOLATE [Concomitant]

REACTIONS (7)
  - OEDEMA PERIPHERAL [None]
  - NAUSEA [None]
  - THROMBOPHLEBITIS SUPERFICIAL [None]
  - PAIN IN EXTREMITY [None]
  - DEEP VEIN THROMBOSIS [None]
  - ASTHENIA [None]
  - INJECTION SITE ERYTHEMA [None]
